FAERS Safety Report 16939576 (Version 2)
Quarter: 2019Q4

REPORT INFORMATION
  Report Type: Spontaneous
  Country: PL (occurrence: PL)
  Receive Date: 20191021
  Receipt Date: 20191217
  Transmission Date: 20200122
  Serious: Yes (Hospitalization, Other)
  Sender: FDA-Public Use
  Company Number: PL-ROCHE-2437599

PATIENT
  Age: 60 Year
  Sex: Female

DRUGS (31)
  1. RITUXIMAB. [Suspect]
     Active Substance: RITUXIMAB
     Route: 065
  2. RITUXIMAB. [Suspect]
     Active Substance: RITUXIMAB
     Dosage: FIRST THERAPY LINE (R-FC); 1ST DAY IN THE SECOND CYCLE
     Route: 065
  3. DEXAMETHASONE. [Suspect]
     Active Substance: DEXAMETHASONE
     Indication: CHRONIC LYMPHOCYTIC LEUKAEMIA STAGE 4
     Dosage: DAY 1-7 (SECOND LINE TREATMENT)
     Route: 065
  4. DEXAMETHASONE. [Suspect]
     Active Substance: DEXAMETHASONE
     Dosage: SECOND THERAPY LINE R-CD; 6 THE SAME 1 DAY THERAPY CYCLES
     Route: 065
  5. FLUDARABINE PHOSPHATE. [Suspect]
     Active Substance: FLUDARABINE PHOSPHATE
     Dosage: DAY 1-3
     Route: 065
  6. SIMVASTATIN. [Suspect]
     Active Substance: SIMVASTATIN
     Indication: HYPERCHOLESTEROLAEMIA
     Route: 065
  7. RITUXIMAB. [Suspect]
     Active Substance: RITUXIMAB
     Dosage: FIRST THERAPY LINE (R-FC); 1ST DAY IN THE THIRD CYCLE
     Route: 065
  8. RITUXIMAB. [Suspect]
     Active Substance: RITUXIMAB
     Dosage: FIRST LINE OF THERAPY R-CD; 4 THE SAME 1 DAY THERAPY CYCLES
     Route: 065
  9. DEXAMETHASONE. [Suspect]
     Active Substance: DEXAMETHASONE
     Dosage: DAY 1 (FIRST LINE TREATMENT)
     Route: 065
  10. CYCLOPHOSPHAMIDE. [Suspect]
     Active Substance: CYCLOPHOSPHAMIDE
     Dosage: FIRST THERAPY LINE (R-FC); 1-3 DAYS IN THE FIRST CYCLE?FIRST THERAPY LINE (R-FC); 1-3 DAYS IN THE TH
     Route: 065
  11. AMOXICILLIN CLAVULANIC ACID [Suspect]
     Active Substance: AMOXICILLIN\CLAVULANIC ACID
     Indication: PRODUCT USED FOR UNKNOWN INDICATION
     Route: 065
  12. RITUXIMAB. [Suspect]
     Active Substance: RITUXIMAB
     Indication: CHRONIC LYMPHOCYTIC LEUKAEMIA STAGE 4
     Route: 065
  13. RITUXIMAB. [Suspect]
     Active Substance: RITUXIMAB
     Route: 065
  14. METHYLPREDNISOLONE. [Suspect]
     Active Substance: METHYLPREDNISOLONE
     Indication: PRODUCT USED FOR UNKNOWN INDICATION
     Route: 065
  15. RITUXIMAB. [Suspect]
     Active Substance: RITUXIMAB
     Dosage: SECOND LINE OF THERAPY R-CD; 6 THE SAME 1-DAY THERAPY CYCLES
     Route: 065
  16. CYCLOPHOSPHAMIDE. [Suspect]
     Active Substance: CYCLOPHOSPHAMIDE
     Dosage: DAY 1 (SECOND LINE OF TREATMENT)
     Route: 065
  17. RAMIPRIL. [Suspect]
     Active Substance: RAMIPRIL
     Indication: HYPERTENSION
     Route: 065
  18. DEXAMETHASONE. [Suspect]
     Active Substance: DEXAMETHASONE
     Dosage: FIRST LINE OF THERAPY R-CD; 4 THE SAME 1 DAY THERAPY CYCLES
     Route: 065
  19. FLUDARABINE PHOSPHATE. [Suspect]
     Active Substance: FLUDARABINE PHOSPHATE
     Indication: CHRONIC LYMPHOCYTIC LEUKAEMIA STAGE 4
     Dosage: DAY 1-3
     Route: 065
  20. CYCLOPHOSPHAMIDE. [Suspect]
     Active Substance: CYCLOPHOSPHAMIDE
     Indication: CHRONIC LYMPHOCYTIC LEUKAEMIA STAGE 4
     Dosage: DAY 1 (FIRST LINE OF TREATMENT)
     Route: 065
  21. CYCLOPHOSPHAMIDE. [Suspect]
     Active Substance: CYCLOPHOSPHAMIDE
     Dosage: DAYS 1-3
     Route: 065
  22. FILGRASTIM [Suspect]
     Active Substance: FILGRASTIM
     Indication: PRODUCT USED FOR UNKNOWN INDICATION
     Dosage: 30 UNK
     Route: 058
  23. FLUDARABINE PHOSPHATE. [Suspect]
     Active Substance: FLUDARABINE PHOSPHATE
     Dosage: FIRST THERAPY LINE (R-FC); 1-3 DAYS IN THE THIRD CYCLE
     Route: 065
  24. CYCLOPHOSPHAMIDE. [Suspect]
     Active Substance: CYCLOPHOSPHAMIDE
     Dosage: DAYS 1-3
     Route: 065
  25. CYCLOPHOSPHAMIDE. [Suspect]
     Active Substance: CYCLOPHOSPHAMIDE
     Dosage: SECOND LINE OF THERAPY R-CD; 6 THE SAME 1-DAY THERAPY CYCLES?FIRST LINE OF THERAPY R-CD; 4 THE SAME
     Route: 065
  26. METFORMIN [Suspect]
     Active Substance: METFORMIN HYDROCHLORIDE
     Indication: STEROID DIABETES
     Route: 065
  27. RITUXIMAB. [Suspect]
     Active Substance: RITUXIMAB
     Dosage: (FIRST LINE TREATMENT)
     Route: 065
  28. RITUXIMAB. [Suspect]
     Active Substance: RITUXIMAB
     Dosage: FIRST THERAPY LINE (R-FC); 1ST DAY IN THE FIRST CYCLE
     Route: 065
  29. FLUDARABINE PHOSPHATE. [Suspect]
     Active Substance: FLUDARABINE PHOSPHATE
     Dosage: FIRST THERAPY LINE (R-FC); 1-3 DAYS IN THE FIRST CYCLE
     Route: 065
  30. CIPROFLOXACIN. [Suspect]
     Active Substance: CIPROFLOXACIN
     Indication: PRODUCT USED FOR UNKNOWN INDICATION
     Route: 065
  31. FLUCONAZOLE. [Suspect]
     Active Substance: FLUCONAZOLE
     Indication: PRODUCT USED FOR UNKNOWN INDICATION
     Route: 065

REACTIONS (16)
  - Haemolysis [Recovered/Resolved]
  - Heart rate increased [Unknown]
  - Pyrexia [Unknown]
  - Chronic myeloid leukaemia recurrent [Unknown]
  - Dyspnoea exertional [Unknown]
  - Malaise [Unknown]
  - Pulmonary embolism [Unknown]
  - Painful respiration [Unknown]
  - Blood disorder [Unknown]
  - Haemolytic anaemia [Unknown]
  - Fatigue [Unknown]
  - Tachycardia [Unknown]
  - Breath sounds abnormal [Unknown]
  - Steroid diabetes [Unknown]
  - Chronic lymphocytic leukaemia recurrent [Unknown]
  - Neutropenia [Unknown]
